FAERS Safety Report 14943511 (Version 1)
Quarter: 2018Q2

REPORT INFORMATION
  Report Type: Spontaneous
  Country: US (occurrence: US)
  Receive Date: 20180528
  Receipt Date: 20180528
  Transmission Date: 20180711
  Serious: No
  Sender: FDA-Public Use
  Company Number: US-009507513-1805USA008449

PATIENT
  Age: 33 Year
  Sex: Female
  Weight: 65.76 kg

DRUGS (3)
  1. IBUPROFEN. [Concomitant]
     Active Substance: IBUPROFEN
     Dosage: UNK
  2. NEXPLANON [Suspect]
     Active Substance: ETONOGESTREL
     Indication: MUSCLE SPASMS
  3. NEXPLANON [Suspect]
     Active Substance: ETONOGESTREL
     Indication: CONTRACEPTION
     Dosage: IMPLANT INSIDE THE LEFT ARM, 3 YEAR IMPLANT
     Route: 059
     Dates: start: 20150203

REACTIONS (6)
  - Product use in unapproved indication [Unknown]
  - Amenorrhoea [Unknown]
  - Incorrect drug administration duration [Unknown]
  - Breast tenderness [Unknown]
  - Uterine tenderness [Unknown]
  - Expired product administered [Unknown]

NARRATIVE: CASE EVENT DATE: 20150203
